FAERS Safety Report 8157232-9 (Version None)
Quarter: 2012Q1

REPORT INFORMATION
  Report Type: 
  Country: None (occurrence: None)
  Receive Date: 20120222
  Receipt Date: 20120222
  Transmission Date: 20120608
  Serious: Yes (Hospitalization)
  Sender: FDA-Public Use
  Company Number: None

PATIENT
  Age: 55 Year
  Sex: Female
  Weight: 88.45 kg

DRUGS (1)
  1. HYDROCODONE BITARTRATE AND CHLORPHENIRAMINE MALEATE POLISTIREX [Suspect]
     Indication: COUGH
     Dosage: 1 TSP.
     Route: 048
     Dates: start: 20120218, end: 20120218

REACTIONS (6)
  - VOMITING [None]
  - DIZZINESS [None]
  - COLD SWEAT [None]
  - DYSPNOEA [None]
  - OVERDOSE [None]
  - HEART RATE INCREASED [None]
